FAERS Safety Report 13332647 (Version 2)
Quarter: 2017Q1

REPORT INFORMATION
  Report Type: Report from Study
  Country: US (occurrence: US)
  Receive Date: 20170313
  Receipt Date: 20170323
  Transmission Date: 20170428
  Serious: Yes (Hospitalization, Other)
  Sender: FDA-Public Use
  Company Number: US-BAYER-2017-001656

PATIENT
  Age: 55 Year
  Sex: Male

DRUGS (4)
  1. NEXAVAR [Suspect]
     Active Substance: SORAFENIB
     Indication: HEPATOCELLULAR CARCINOMA
     Dosage: 200 MG, QOD
     Route: 048
     Dates: start: 20170118, end: 20170220
  2. NEXAVAR [Suspect]
     Active Substance: SORAFENIB
     Indication: HEPATOCELLULAR CARCINOMA
     Dosage: 200 MG, BID
     Route: 048
     Dates: start: 20170104, end: 20170109
  3. NEXAVAR [Suspect]
     Active Substance: SORAFENIB
     Indication: HEPATOCELLULAR CARCINOMA
     Dosage: 200 MG, QOD
     Route: 048
     Dates: start: 2017, end: 20170303
  4. NEXAVAR [Suspect]
     Active Substance: SORAFENIB
     Indication: HEPATOCELLULAR CARCINOMA
     Dosage: 400 MG, BID
     Route: 048
     Dates: start: 20161216, end: 20170103

REACTIONS (25)
  - Weight decreased [None]
  - Nasal discharge discolouration [None]
  - Decreased appetite [Not Recovered/Not Resolved]
  - Gallbladder disorder [None]
  - Bone marrow failure [None]
  - Hyperglycaemia [None]
  - Underdose [None]
  - Nausea [None]
  - Ascites [Not Recovered/Not Resolved]
  - Psoriasis [Not Recovered/Not Resolved]
  - Decreased appetite [None]
  - Thrombocytopenia [None]
  - Fatigue [Not Recovered/Not Resolved]
  - Nausea [None]
  - Asthenia [None]
  - Epistaxis [Not Recovered/Not Resolved]
  - Pain [None]
  - Hepatic enzyme increased [None]
  - Rash [Not Recovered/Not Resolved]
  - Pain [Not Recovered/Not Resolved]
  - Fatigue [None]
  - Pyrexia [None]
  - Neutropenia [None]
  - Headache [Not Recovered/Not Resolved]
  - Epistaxis [None]

NARRATIVE: CASE EVENT DATE: 2017
